FAERS Safety Report 8851069 (Version 1)
Quarter: 2012Q4

REPORT INFORMATION
  Report Type: 
  Country: GB (occurrence: GB)
  Receive Date: 20121019
  Receipt Date: 20121019
  Transmission Date: 20130627
  Serious: Yes (Life-Threatening, Disabling, Other)
  Sender: FDA-Public Use
  Company Number: GB-TEVA-363967ISR

PATIENT
  Age: 50 Year
  Sex: Female
  Weight: 50 kg

DRUGS (7)
  1. RISPERIDONE [Suspect]
     Indication: ABNORMAL BEHAVIOUR
     Dosage: 1 Milligram Daily;
     Dates: start: 20110124
  2. RISPERIDONE [Suspect]
     Dosage: 0.75mg and 0.5 daily
     Dates: start: 20110120, end: 20110124
  3. RISPERIDONE [Suspect]
     Dosage: 2 Milligram Daily;
     Dates: start: 20080924
  4. RISPERIDONE [Suspect]
     Dosage: 4 Milligram Daily;
     Dates: start: 200903
  5. ANTIBIOTICS [Concomitant]
     Indication: STAPHYLOCOCCAL INFECTION
     Dates: start: 201102
  6. ANTIBIOTICS [Concomitant]
     Indication: CLOSTRIDIAL INFECTION
     Dates: end: 201208
  7. ANALGESIC [Concomitant]
     Indication: PAIN

REACTIONS (21)
  - Sedation [Unknown]
  - Tardive dyskinesia [Unknown]
  - Sydenham^s chorea [Unknown]
  - Spasmodic dysphonia [Unknown]
  - Emotional distress [Unknown]
  - Dyspnoea [Unknown]
  - Somnolence [Unknown]
  - Muscle spasticity [Unknown]
  - Confusional state [Unknown]
  - Salivary hypersecretion [Unknown]
  - Extrapyramidal disorder [None]
  - Pleurothotonus [None]
  - Drug tolerance [None]
  - Agitation [None]
  - Pain [None]
  - Mood swings [None]
  - Gastrointestinal obstruction [None]
  - Psychotic disorder [None]
  - Incontinence [None]
  - Muscle contracture [None]
  - Mobility decreased [None]
